FAERS Safety Report 7333071-3 (Version None)
Quarter: 2011Q1

REPORT INFORMATION
  Report Type: 
  Country: None (occurrence: None)
  Receive Date: 20110222
  Receipt Date: 20110215
  Transmission Date: 20110831
  Serious: Yes (Death)
  Sender: FDA-Public Use
  Company Number: 2011SP007209

PATIENT
  Age: 54 Year
  Sex: Male

DRUGS (5)
  1. ALDACTONE [Concomitant]
  2. DESYREL [Concomitant]
  3. SEROQUEL [Concomitant]
  4. RIVOTRIL [Concomitant]
  5. REMERON [Suspect]
     Indication: PRODUCT USED FOR UNKNOWN INDICATION
     Dosage: 45 MG QD

REACTIONS (8)
  - TOXICITY TO VARIOUS AGENTS [None]
  - ECCHYMOSIS [None]
  - FALL [None]
  - DRUG INTERACTION [None]
  - OVERDOSE [None]
  - MEDICATION ERROR [None]
  - RIB FRACTURE [None]
  - INJURY [None]
